FAERS Safety Report 6184512-9 (Version None)
Quarter: 2009Q2

REPORT INFORMATION
  Report Type: 
  Country: None (occurrence: None)
  Receive Date: 20090508
  Receipt Date: 20090505
  Transmission Date: 20091009
  Serious: Yes (Hospitalization)
  Sender: FDA-Public Use
  Company Number: DE-BAYER-200825409GPV

PATIENT
  Age: 73 Year
  Sex: Male
  Weight: 89 kg

DRUGS (3)
  1. SORAFENIB [Suspect]
     Indication: HEPATIC NEOPLASM MALIGNANT
     Dosage: TOTAL DAILY DOSE: 800 MG
     Route: 048
     Dates: start: 20080308, end: 20080819
  2. SORAFENIB [Suspect]
     Route: 048
  3. PREDNISOLONE [Concomitant]
     Indication: PULMONARY FIBROSIS
     Route: 048
     Dates: end: 20080413

REACTIONS (1)
  - LIVER ABSCESS [None]
